FAERS Safety Report 19951211 (Version 3)
Quarter: 2021Q4

REPORT INFORMATION
  Report Type: Spontaneous
  Country: US (occurrence: US)
  Receive Date: 20211014
  Receipt Date: 20211111
  Transmission Date: 20220303
  Serious: Yes (Other)
  Sender: FDA-Public Use
  Company Number: US-CELGENE-USA-20211001924

PATIENT
  Age: 67 Year
  Sex: Female
  Weight: 93.706 kg

DRUGS (5)
  1. REVLIMID [Suspect]
     Active Substance: LENALIDOMIDE
     Indication: Plasma cell myeloma
     Dosage: 15 MILLIGRAM
     Route: 048
     Dates: start: 20201123
  2. REVLIMID [Suspect]
     Active Substance: LENALIDOMIDE
     Dosage: 5 MILLIGRAM
     Route: 048
     Dates: start: 202101
  3. REVLIMID [Suspect]
     Active Substance: LENALIDOMIDE
     Dosage: 10 MILLIGRAM
     Route: 048
     Dates: start: 202103
  4. REVLIMID [Suspect]
     Active Substance: LENALIDOMIDE
     Dosage: 15 MILLIGRAM
     Route: 048
     Dates: start: 202106
  5. DEXAMETHASONE [Suspect]
     Active Substance: DEXAMETHASONE
     Indication: Product used for unknown indication
     Route: 065

REACTIONS (10)
  - Cataract [Unknown]
  - Eye pain [Unknown]
  - Abdominal distension [Unknown]
  - Toxicity to various agents [Unknown]
  - Ocular hyperaemia [Unknown]
  - Swelling [Unknown]
  - Dehydration [Unknown]
  - Hypertension [Unknown]
  - Vision blurred [Unknown]
  - Rash [Unknown]

NARRATIVE: CASE EVENT DATE: 20211001
